FAERS Safety Report 21404444 (Version 1)
Quarter: 2022Q4

REPORT INFORMATION
  Report Type: Report from Study
  Country: US (occurrence: US)
  Receive Date: 20221003
  Receipt Date: 20221003
  Transmission Date: 20230113
  Serious: Yes (Other)
  Sender: FDA-Public Use
  Company Number: US-PFIZER INC-PV202200043356

PATIENT
  Age: 58 Year
  Sex: Female

DRUGS (2)
  1. IBRANCE [Suspect]
     Active Substance: PALBOCICLIB
     Indication: Breast cancer female
     Dosage: 100 MG, CYCLIC (DAILY 21 DAYS WITH 7 DAYS OFF)
     Route: 048
     Dates: start: 20220722, end: 202209
  2. FASLODEX [Concomitant]
     Active Substance: FULVESTRANT
     Dosage: UNK
     Dates: end: 20220926

REACTIONS (10)
  - Renal impairment [Recovering/Resolving]
  - Vomiting [Recovered/Resolved]
  - Fatigue [Recovering/Resolving]
  - White blood cell count abnormal [Recovering/Resolving]
  - Hepatic enzyme abnormal [Recovering/Resolving]
  - Cough [Recovering/Resolving]
  - Rhinorrhoea [Recovering/Resolving]
  - Feeling abnormal [Unknown]
  - Feeling jittery [Recovering/Resolving]
  - Insomnia [Unknown]

NARRATIVE: CASE EVENT DATE: 20220101
